FAERS Safety Report 14234115 (Version 1)
Quarter: 2017Q4

REPORT INFORMATION
  Report Type: Spontaneous
  Country: CH (occurrence: CH)
  Receive Date: 20171128
  Receipt Date: 20171128
  Transmission Date: 20180321
  Serious: Yes (Hospitalization)
  Sender: FDA-Public Use
  Company Number: CH-009507513-1711CHE009049

PATIENT
  Age: 61 Year
  Sex: Female
  Weight: 86.98 kg

DRUGS (22)
  1. NOVALGIN (DIPYRONE) [Suspect]
     Active Substance: DIPYRONE
     Dosage: 40 GTT, QID
     Dates: start: 20170925, end: 20171008
  2. ALDACTONE [Concomitant]
     Active Substance: SPIRONOLACTONE
     Dosage: 25 MG, QD
  3. TARGIN [Concomitant]
     Active Substance: NALOXONE HYDROCHLORIDE\OXYCODONE HYDROCHLORIDE
     Route: 048
  4. DAFALGAN [Concomitant]
     Active Substance: ACETAMINOPHEN
     Dosage: 1 G, QID
     Route: 048
     Dates: start: 20170925, end: 20171002
  5. DOSPIR [Concomitant]
     Active Substance: ALBUTEROL SULFATE\IPRATROPIUM BROMIDE
     Dosage: 1 MICROGRAM, QID (LIQUIDS, INHALATIONS)
  6. COSAAR 100 [Suspect]
     Active Substance: LOSARTAN POTASSIUM
     Dosage: 50 MG, QD
     Route: 048
     Dates: end: 20171009
  7. ASS CARDIO SPIRIG HC [Concomitant]
     Dosage: 100 MG, QD
  8. AUGMENTIN [Concomitant]
     Active Substance: AMOXICILLIN\CLAVULANATE POTASSIUM
     Dosage: UNK
     Dates: start: 20170829, end: 20170905
  9. BRUFEN [Interacting]
     Active Substance: IBUPROFEN
     Dosage: 400 MG, TID
     Route: 048
     Dates: start: 20170925, end: 20171006
  10. FRAGMIN [Concomitant]
     Active Substance: DALTEPARIN SODIUM
     Dosage: 5000 IU, QD
  11. LANTUS [Concomitant]
     Active Substance: INSULIN GLARGINE
     Dosage: 6 IU, QD (VIALS)
  12. TAZOBAC [Concomitant]
     Active Substance: PIPERACILLIN SODIUM\TAZOBACTAM SODIUM
     Dosage: 4.5 G, TID
     Dates: start: 20170926, end: 20170930
  13. CEFEPIME [Concomitant]
     Active Substance: CEFEPIME HYDROCHLORIDE
     Dosage: 1 G, TID
     Dates: start: 20170720, end: 20170808
  14. CIPROXIN (CIPROFLOXACIN HYDROCHLORIDE) (FILM-COATED TABLET) (CIPROFLOXACIN HYDROCHLORIDE) [Suspect]
     Active Substance: CIPROFLOXACIN
     Dosage: 750 MG, BID
     Dates: start: 20170923, end: 20171009
  15. PANTOZOL [Concomitant]
     Active Substance: PANTOPRAZOLE SODIUM
     Dosage: 40 MG, QD
  16. NEBILET [Concomitant]
     Active Substance: NEBIVOLOL
     Dosage: 5 MG, QD
     Route: 048
  17. REDORMIN (VALERIAN) [Concomitant]
     Dosage: 250 MG, QD
  18. CANCIDAS [Concomitant]
     Active Substance: CASPOFUNGIN ACETATE
     Dosage: 50 MG, QD
     Dates: start: 20170923, end: 20170930
  19. DAFALGAN [Concomitant]
     Active Substance: ACETAMINOPHEN
     Dosage: 1 G, QID
     Route: 048
     Dates: start: 20171009, end: 20171020
  20. MEROPENEM. [Concomitant]
     Active Substance: MEROPENEM
     Dosage: 1 G, TID
     Dates: start: 20170923, end: 20170926
  21. TOREM [Interacting]
     Active Substance: TORSEMIDE
     Dosage: 50 MG, QD
     Route: 048
     Dates: end: 20171009
  22. KLACID (CLARITHROMYCIN LACTOBIONATE) [Concomitant]
     Active Substance: CLARITHROMYCIN
     Dosage: UNK
     Dates: start: 20170612, end: 20170614

REACTIONS (2)
  - Drug interaction [Recovered/Resolved]
  - Acute kidney injury [Recovered/Resolved]

NARRATIVE: CASE EVENT DATE: 20171009
